FAERS Safety Report 4699023-7 (Version None)
Quarter: 2005Q2

REPORT INFORMATION
  Report Type: 
  Country: None (occurrence: None)
  Receive Date: 20050623
  Receipt Date: 20050623
  Transmission Date: 20051028
  Serious: No
  Sender: FDA-Public Use
  Company Number: None

PATIENT

DRUGS (7)
  1. FORTEO [Suspect]
     Indication: OSTEOPOROSIS
     Dosage: INCREASED ONCE DAILY
  2. TOPROL-XL [Concomitant]
  3. CELEXA [Concomitant]
  4. TRICOR [Concomitant]
  5. FLOMAX [Concomitant]
  6. ALLOPURINOL [Concomitant]
  7. ACTOS [Concomitant]

REACTIONS (1)
  - MYELOFIBROSIS [None]
